FAERS Safety Report 6667494-2 (Version None)
Quarter: 2010Q2

REPORT INFORMATION
  Report Type: 
  Country: None (occurrence: None)
  Receive Date: 20100405
  Receipt Date: 20100323
  Transmission Date: 20101027
  Serious: Yes (Death, Other)
  Sender: FDA-Public Use
  Company Number: US-BAYER-200823842GPV

PATIENT
  Age: 23 Year
  Sex: Male

DRUGS (3)
  1. FLUDARABINE PHOSPHATE [Suspect]
     Indication: BONE MARROW CONDITIONING REGIMEN
     Dosage: STANDARD DOSES FOR 5 DAYS
     Route: 065
  2. RITUXIMAB [Concomitant]
     Indication: BONE MARROW CONDITIONING REGIMEN
  3. CYCLOPHOSPHAMIDE [Concomitant]
     Indication: BONE MARROW CONDITIONING REGIMEN

REACTIONS (9)
  - BLINDNESS [None]
  - BRAIN HERNIATION [None]
  - BRAIN OEDEMA [None]
  - ENCEPHALOPATHY [None]
  - HYDROCEPHALUS [None]
  - MYELOPATHY [None]
  - OCULAR TOXICITY [None]
  - OPTIC ATROPHY [None]
  - VISUAL ACUITY REDUCED [None]
